FAERS Safety Report 4844502-2 (Version None)
Quarter: 2005Q4

REPORT INFORMATION
  Report Type: 
  Country: None (occurrence: None)
  Receive Date: 20051203
  Receipt Date: 20051011
  Transmission Date: 20060501
  Serious: Yes (Other)
  Sender: FDA-Public Use
  Company Number: PHHO2005CA16302

PATIENT
  Sex: Female

DRUGS (4)
  1. ZOMETA [Suspect]
     Indication: BREAST CANCER
     Dosage: 4 MG ONCE MONTHLY
     Route: 042
     Dates: start: 20050821, end: 20050821
  2. CALCIUM GLUCONATE [Concomitant]
  3. VITAMIN D [Concomitant]
  4. XELODA [Concomitant]

REACTIONS (3)
  - JAW FRACTURE [None]
  - METASTASES TO BONE [None]
  - OSTEONECROSIS [None]
